FAERS Safety Report 17263404 (Version 1)
Quarter: 2020Q1

REPORT INFORMATION
  Report Type: Spontaneous
  Country: US (occurrence: US)
  Receive Date: 20200113
  Receipt Date: 20200113
  Transmission Date: 20200409
  Serious: No
  Sender: FDA-Public Use
  Company Number: US-GENERICUS, INC.-2019GNR00041

PATIENT
  Age: 2 Year
  Sex: Female

DRUGS (1)
  1. TOBRAMYCIN. [Suspect]
     Active Substance: TOBRAMYCIN
     Indication: HETEROTAXIA
     Dosage: 300 MG, 2X/DAY (28 DAYS ON AND 28 DAYS OFF)
     Dates: start: 20191001

REACTIONS (3)
  - Hypophagia [Unknown]
  - Off label use [Not Recovered/Not Resolved]
  - Weight decreased [Not Recovered/Not Resolved]

NARRATIVE: CASE EVENT DATE: 20191001
